FAERS Safety Report 4426111-2 (Version None)
Quarter: 2004Q3

REPORT INFORMATION
  Report Type: 
  Country: None (occurrence: None)
  Receive Date: 20040811
  Receipt Date: 20040727
  Transmission Date: 20050211
  Serious: Yes (Other)
  Sender: FDA-Public Use
  Company Number: USA040773844

PATIENT
  Age: 75 Year
  Sex: Male

DRUGS (10)
  1. FORTEO [Suspect]
     Indication: OSTEOPOROSIS
     Dates: start: 20040501
  2. OXYGEN [Concomitant]
  3. THEOPHYLLINE [Concomitant]
  4. PROTONIX [Concomitant]
  5. POTASSIUM CHLORIDE [Concomitant]
  6. CALCIUM CARBONATE [Concomitant]
  7. VITAMIN D [Concomitant]
  8. LEXAPRO [Concomitant]
  9. PROPRANOLOL [Concomitant]
  10. SINGULAIR (MONTELUKAST) [Concomitant]

REACTIONS (6)
  - ERYTHEMA [None]
  - FEELING ABNORMAL [None]
  - FEELING HOT [None]
  - LOSS OF CONSCIOUSNESS [None]
  - MALAISE [None]
  - MUSCLE CRAMP [None]
